FAERS Safety Report 4479198-5 (Version None)
Quarter: 2004Q4

REPORT INFORMATION
  Report Type: 
  Country: None (occurrence: None)
  Receive Date: 20041015
  Receipt Date: 20040929
  Transmission Date: 20050328
  Serious: Yes (Other)
  Sender: FDA-Public Use
  Company Number: 2004234255JP

PATIENT
  Age: 59 Year
  Sex: Male

DRUGS (4)
  1. SOLU-MEDROL [Suspect]
     Indication: IMMUNOSUPPRESSION
  2. CYCLOSPORINE [Suspect]
     Indication: IMMUNOSUPPRESSION
  3. MIZORIBINE(MIZORIBINE) [Suspect]
     Indication: IMMUNOSUPPRESSION
  4. AHLBULIN(ANTILYMPHOCYTE IMMUNOGLOBULIN (HORSE)) [Suspect]
     Indication: IMMUNOSUPPRESSION
     Dosage: IV
     Route: 042

REACTIONS (1)
  - PULMONARY TUBERCULOSIS [None]
